FAERS Safety Report 4941633-3 (Version None)
Quarter: 2006Q1

REPORT INFORMATION
  Report Type: 
  Country: None (occurrence: None)
  Receive Date: 20060308
  Receipt Date: 20060206
  Transmission Date: 20060701
  Serious: Yes (Death)
  Sender: FDA-Public Use
  Company Number: HQWYE444720JAN06

PATIENT
  Age: 14 Year
  Sex: Female

DRUGS (6)
  1. EFFEXOR XR [Suspect]
     Indication: DEPRESSION
     Dosage: SEE IMAGE
     Route: 048
     Dates: start: 20040101, end: 20040101
  2. EFFEXOR XR [Suspect]
     Indication: DEPRESSION
     Dosage: SEE IMAGE
     Route: 048
     Dates: start: 20040814, end: 20040101
  3. ZYPREXA [Concomitant]
  4. ZOLPIDEM TARTRATE [Concomitant]
  5. ENDEP [Concomitant]
  6. DIANE-35 ED (CYPROTERONE ACETATE/ETHINYLESTRADIOL) [Concomitant]

REACTIONS (8)
  - AGGRESSION [None]
  - ANGER [None]
  - COMPLETED SUICIDE [None]
  - CONVULSION [None]
  - EMOTIONAL DISORDER [None]
  - INJURY ASPHYXIATION [None]
  - SELF INJURIOUS BEHAVIOUR [None]
  - TREATMENT NONCOMPLIANCE [None]
